FAERS Safety Report 24311676 (Version 1)
Quarter: 2024Q3

REPORT INFORMATION
  Report Type: Spontaneous
  Country: MY (occurrence: MY)
  Receive Date: 20240912
  Receipt Date: 20240912
  Transmission Date: 20241017
  Serious: Yes (Hospitalization, Other)
  Sender: PFIZER
  Company Number: MY-PFIZER INC-PV202400118036

PATIENT
  Age: 59 Year
  Sex: Male

DRUGS (4)
  1. LORLATINIB [Suspect]
     Active Substance: LORLATINIB
     Indication: Lung adenocarcinoma
     Dosage: UNK
     Dates: start: 20221021
  2. LORLATINIB [Suspect]
     Active Substance: LORLATINIB
     Dosage: 100 MG (5 DAYS, AND REST DURING THE WEEKENDS)
     Dates: start: 202308
  3. LORLATINIB [Suspect]
     Active Substance: LORLATINIB
     Dosage: 100 MG, ALTERNATE DAY
     Dates: start: 202308
  4. LORLATINIB [Suspect]
     Active Substance: LORLATINIB
     Dosage: 100 MG, 1X/DAY
     Dates: start: 202312

REACTIONS (15)
  - Cough [Unknown]
  - Dyspnoea [Recovered/Resolved]
  - Peripheral swelling [Recovered/Resolved]
  - Pneumonia [Unknown]
  - Pleural effusion [Unknown]
  - Condition aggravated [Unknown]
  - Abdominal discomfort [Unknown]
  - Cardiomegaly [Unknown]
  - Pericardial effusion [Unknown]
  - Empyema [Unknown]
  - Hyperbilirubinaemia [Unknown]
  - Blood alkaline phosphatase increased [Unknown]
  - Neoplasm progression [Unknown]
  - Blood albumin decreased [Unknown]
  - C-reactive protein increased [Unknown]

NARRATIVE: CASE EVENT DATE: 20221101
